FAERS Safety Report 7305464-1 (Version None)
Quarter: 2011Q1

REPORT INFORMATION
  Report Type: 
  Country: None (occurrence: None)
  Receive Date: 20110222
  Receipt Date: 20110210
  Transmission Date: 20110831
  Serious: Yes (Other)
  Sender: FDA-Public Use
  Company Number: US-ELI_LILLY_AND_COMPANY-US201012002713

PATIENT
  Sex: Female

DRUGS (11)
  1. AMLODIPINE [Concomitant]
     Dosage: 5 MG, DAILY (1/D)
  2. POTASSIUM [Concomitant]
     Dosage: 10 MEQ, DAILY (1/D)
  3. AMITRIPTYLINE [Concomitant]
     Dosage: 25 MG, EACH EVENING
  4. INDAPAMIDE [Concomitant]
     Dosage: 2.5 MG, DAILY (1/D)
  5. PREMARIN [Concomitant]
     Dosage: 0.625 MG, DAILY (1/D)
  6. MELOXICAM [Concomitant]
     Indication: FIBROMYALGIA
     Dosage: 7.5 MG, DAILY (1/D)
  7. LORAZEPAM [Concomitant]
     Dosage: 1 MG, EACH EVENING
  8. VITAMIN D [Concomitant]
     Dosage: 1000 IU, DAILY (1/D)
  9. CALCIUM [Concomitant]
     Dosage: 1000 MG, DAILY (1/D)
  10. FORTEO [Suspect]
     Indication: OSTEOPOROSIS
     Dosage: 20 UG, DAILY (1/D)
     Route: 065
     Dates: start: 20090601
  11. ASA [Concomitant]
     Dosage: 81 MG, DAILY (1/D)

REACTIONS (3)
  - BREAST CANCER [None]
  - NEPHROLITHIASIS [None]
  - BLOOD CALCIUM INCREASED [None]
